FAERS Safety Report 6441840-7 (Version None)
Quarter: 2009Q4

REPORT INFORMATION
  Report Type: 
  Country: None (occurrence: None)
  Receive Date: 20091112
  Receipt Date: 20091104
  Transmission Date: 20100525
  Serious: Yes (Other)
  Sender: FDA-Public Use
  Company Number: 09US004840

PATIENT
  Age: 49 Year
  Sex: Female
  Weight: 77.1 kg

DRUGS (8)
  1. NAPROXEN SODIUM [Suspect]
     Indication: DRUG USE FOR UNKNOWN INDICATION
     Dosage: 440 MG QD ORAL
     Route: 048
     Dates: start: 20091102, end: 20091104
  2. WARFARIN SODIUM [Concomitant]
  3. OMEPRAZOLE [Concomitant]
  4. FLUTICASONE PROPIONATE [Concomitant]
  5. CLEMASTINE (CLEMASTINE FUMARATE) [Concomitant]
  6. ALBUTEROL (SALBUTAMOL SULFATE) [Concomitant]
  7. ANTIHISTAMINES [Concomitant]
  8. HYDROCHLOROTHIAZIDE [Concomitant]

REACTIONS (4)
  - COUGH [None]
  - DYSPHAGIA [None]
  - DYSPNOEA [None]
  - SOMNOLENCE [None]
